FAERS Safety Report 9507273 (Version 2)
Quarter: 2013Q3

REPORT INFORMATION
  Report Type: Spontaneous
  Country: FR (occurrence: FR)
  Receive Date: 20130909
  Receipt Date: 20130909
  Transmission Date: 20140515
  Serious: Yes (Other)
  Sender: FDA-Public Use
  Company Number: FR-IPSEN BIOPHARMACEUTICALS, INC.-2012-7853

PATIENT
  Age: 66 Year
  Sex: Female

DRUGS (3)
  1. DYSPORT [Suspect]
     Indication: TORTICOLLIS
     Dosage: NOT REPORTED
     Route: 030
     Dates: start: 20120704, end: 20120704
  2. BOTOX [Suspect]
     Indication: TORTICOLLIS
     Dosage: 100 UNITS
     Route: 030
     Dates: start: 20120704, end: 20120704
  3. ARTANE [Concomitant]
     Indication: PRODUCT USED FOR UNKNOWN INDICATION
     Dosage: NOT REPORTED
     Route: 065
     Dates: start: 20100625

REACTIONS (3)
  - Weight decreased [Recovering/Resolving]
  - Dysphonia [Recovering/Resolving]
  - Dysphagia [Recovering/Resolving]
